FAERS Safety Report 12824812 (Version 1)
Quarter: 2016Q4

REPORT INFORMATION
  Report Type: Spontaneous
  Country: TR (occurrence: TR)
  Receive Date: 20161007
  Receipt Date: 20161007
  Transmission Date: 20170207
  Serious: Yes (Other)
  Sender: FDA-Public Use
  Company Number: TR-009507513-1610TUR002586

PATIENT

DRUGS (2)
  1. CASPOFUNGIN ACETATE [Suspect]
     Active Substance: CASPOFUNGIN ACETATE
     Indication: SYSTEMIC CANDIDA
     Dosage: 50 MG/M2, DAILY
     Route: 042
  2. CASPOFUNGIN ACETATE [Suspect]
     Active Substance: CASPOFUNGIN ACETATE
     Dosage: 70 MG/M2, ONCE ON DAY 1
     Route: 042

REACTIONS (2)
  - Drug effect incomplete [Unknown]
  - Systemic candida [Unknown]
